FAERS Safety Report 18511273 (Version 1)
Quarter: 2020Q4

REPORT INFORMATION
  Report Type: Other
  Country: TH (occurrence: TH)
  Receive Date: 20201117
  Receipt Date: 20201117
  Transmission Date: 20210114
  Serious: No
  Sender: FDA-Public Use
  Company Number: TH-XSPIRE PHARMA, LLC-2095997

PATIENT
  Age: 38 Year
  Weight: 65.91 kg

DRUGS (1)
  1. DEXAMETHASONE. [Suspect]
     Active Substance: DEXAMETHASONE
     Indication: SURGERY
     Route: 040

REACTIONS (1)
  - Hiccups [Recovered/Resolved]
